FAERS Safety Report 26134201 (Version 1)
Quarter: 2025Q4

REPORT INFORMATION
  Report Type: Spontaneous
  Country: EU (occurrence: EU)
  Receive Date: 20251209
  Receipt Date: 20251209
  Transmission Date: 20260117
  Serious: Yes (Other)
  Sender: ASTELLAS
  Company Number: EU-ASTELLAS-2025-AER-066335

PATIENT
  Age: 49 Year
  Sex: Female

DRUGS (3)
  1. XOSPATA [Suspect]
     Active Substance: GILTERITINIB
     Indication: Acute myeloid leukaemia recurrent
     Route: 065
     Dates: start: 202501
  2. XOSPATA [Suspect]
     Active Substance: GILTERITINIB
     Indication: FLT3 gene mutation
     Dosage: DOSE INCREASED
     Route: 065
     Dates: start: 2025
  3. XOSPATA [Suspect]
     Active Substance: GILTERITINIB
     Dosage: DOSE REDUCED
     Route: 065
     Dates: start: 202505

REACTIONS (4)
  - Cytopenia [Unknown]
  - Bone marrow failure [Unknown]
  - Acute myeloid leukaemia [Unknown]
  - Skin toxicity [Unknown]

NARRATIVE: CASE EVENT DATE: 20250501
